FAERS Safety Report 25169061 (Version 2)
Quarter: 2025Q2

REPORT INFORMATION
  Report Type: Spontaneous
  Country: US (occurrence: US)
  Receive Date: 20250407
  Receipt Date: 20250429
  Transmission Date: 20250717
  Serious: Yes (Other)
  Sender: ABBVIE
  Company Number: US-ABBVIE-6207340

PATIENT
  Sex: Female

DRUGS (2)
  1. GELNIQUE [Suspect]
     Active Substance: OXYBUTYNIN
     Indication: Hypertonic bladder
     Route: 065
  2. DETROL [Suspect]
     Active Substance: TOLTERODINE TARTRATE
     Indication: Product used for unknown indication
     Route: 065

REACTIONS (4)
  - Large intestinal obstruction [Unknown]
  - Adverse reaction [Unknown]
  - Blister [Unknown]
  - Muscle spasms [Unknown]
